FAERS Safety Report 9452291 (Version 1)
Quarter: 2013Q3

REPORT INFORMATION
  Report Type: Spontaneous
  Country: BR (occurrence: BR)
  Receive Date: 20130812
  Receipt Date: 20130812
  Transmission Date: 20140515
  Serious: Yes (Other)
  Sender: FDA-Public Use
  Company Number: BR-AMGEN-BRASP2013053724

PATIENT
  Age: 48 Year
  Sex: Female
  Weight: 59 kg

DRUGS (4)
  1. ENBREL [Suspect]
     Indication: ANKYLOSING SPONDYLITIS
     Dosage: 50 MG, WEEKLY
     Route: 065
     Dates: start: 20130709, end: 201307
  2. ENALABAL [Concomitant]
     Indication: HYPERTENSION
     Dosage: ONE TABLET OF 10 MG, EVERY DAY
  3. METHOTREXATE [Concomitant]
     Dosage: 4 TABLETS PER WEEK
     Dates: start: 201306
  4. FOLIC ACID [Concomitant]
     Dosage: 2 TABLETS PER WEEK
     Dates: start: 201304

REACTIONS (4)
  - Deafness unilateral [Not Recovered/Not Resolved]
  - Cough [Not Recovered/Not Resolved]
  - Ear discomfort [Not Recovered/Not Resolved]
  - Tinnitus [Not Recovered/Not Resolved]
